FAERS Safety Report 15157247 (Version 1)
Quarter: 2018Q3

REPORT INFORMATION
  Report Type: Spontaneous
  Country: ES (occurrence: ES)
  Receive Date: 20180718
  Receipt Date: 20180718
  Transmission Date: 20181010
  Serious: Yes (Life-Threatening)
  Sender: FDA-Public Use
  Company Number: ES-TEVA-2018-ES-928170

PATIENT
  Age: 45 Year
  Sex: Male
  Weight: 67.1 kg

DRUGS (9)
  1. CERTICAN [Suspect]
     Active Substance: EVEROLIMUS
     Indication: RENAL TRANSPLANT
     Dosage: 1 COMPRIMIDO CADA 12 HORAS
     Route: 048
     Dates: start: 20170401
  2. ADVAGRAF 0,5 MG CAPSULAS DURAS DE LIBERACION PROLONGADA, 30 C?PSULAS [Suspect]
     Active Substance: TACROLIMUS
     Indication: TRANSPLANT
     Route: 065
     Dates: start: 20151016
  3. OMACOR 1000 MG CAPSULAS BLANDAS , 100 C?PSULAS [Concomitant]
     Indication: LIPIDS
     Dosage: 2 DOSAGE FORMS DAILY; 2 C?PSULAS AL D?A
     Route: 048
     Dates: start: 20161103
  4. PRALUENT [Suspect]
     Active Substance: ALIROCUMAB
     Indication: TYPE IIA HYPERLIPIDAEMIA
     Dosage: 75 MG CADA 15 D?AS
     Route: 058
     Dates: start: 20170929
  5. PROFER 80 MG GRANULADO, 30 SOBRES [Concomitant]
     Indication: ANAEMIA
     Dosage: 1 DOSAGE FORMS DAILY; 1 SOBRE CADA 24 HORAS
     Route: 048
     Dates: start: 20170824
  6. PREDNISONA (886A) [Suspect]
     Active Substance: PREDNISONE
     Indication: RENAL TRANSPLANT
     Dosage: 5 MG AL DESAYUNO
     Route: 048
     Dates: start: 20150729
  7. ADVAGRAF 0,5 MG CAPSULAS DURAS DE LIBERACION PROLONGADA, 30 C?PSULAS [Suspect]
     Active Substance: TACROLIMUS
     Dosage: ,1 MG AL D?A,
     Route: 048
     Dates: start: 20151016
  8. BICARBONATO SODICO PEGE POLVO, 1 [Concomitant]
     Dosage: 2 GRAM DAILY; 2 GRAMOS AL D?A
     Route: 048
     Dates: start: 20140730
  9. LOBIVON 5 MG COMPRIMIDOS, 28 COMPRIMIDOS [Concomitant]
     Indication: HYPERTENSION
     Dosage: 1 DOSAGE FORMS DAILY; 1 COMPRIMIDO CADA 24 HORAS
     Route: 048
     Dates: start: 20151215

REACTIONS (1)
  - Pneumonia [Recovered/Resolved]

NARRATIVE: CASE EVENT DATE: 20171017
